FAERS Safety Report 22799114 (Version 6)
Quarter: 2024Q1

REPORT INFORMATION
  Report Type: Spontaneous
  Country: US (occurrence: US)
  Receive Date: 20230808
  Receipt Date: 20240201
  Transmission Date: 20240410
  Serious: No
  Sender: FDA-Public Use
  Company Number: US-PFIZER INC-PV202300132176

PATIENT
  Age: 10 Year
  Sex: Female
  Weight: 29.03 kg

DRUGS (1)
  1. GENOTROPIN [Suspect]
     Active Substance: SOMATROPIN
     Indication: Growth hormone deficiency
     Dosage: 1.2 MG, DAILY

REACTIONS (9)
  - Drug dose omission by device [Unknown]
  - Device malfunction [Unknown]
  - Poor quality device used [Unknown]
  - Device difficult to use [Unknown]
  - Device mechanical issue [Unknown]
  - Device delivery system issue [Unknown]
  - Device physical property issue [Unknown]
  - Circumstance or information capable of leading to medication error [Unknown]
  - Device use issue [Unknown]
